FAERS Safety Report 7039881-4 (Version None)
Quarter: 2010Q4

REPORT INFORMATION
  Report Type: 
  Country: None (occurrence: None)
  Receive Date: 20101012
  Receipt Date: 20101007
  Transmission Date: 20110411
  Serious: Yes (Hospitalization)
  Sender: FDA-Public Use
  Company Number: AR-PFIZER INC-2010123162

PATIENT
  Age: 75 Year
  Sex: Female

DRUGS (1)
  1. AMLOC [Suspect]
     Dosage: UNK
     Route: 048
     Dates: start: 20100926

REACTIONS (1)
  - VERTIGO POSITIONAL [None]
